FAERS Safety Report 6782733-5 (Version None)
Quarter: 2010Q2

REPORT INFORMATION
  Report Type: 
  Country: None (occurrence: None)
  Receive Date: 20100621
  Receipt Date: 20100608
  Transmission Date: 20101027
  Serious: Yes (Hospitalization)
  Sender: FDA-Public Use
  Company Number: FR-GENENTECH-301986

PATIENT
  Sex: Female
  Weight: 73 kg

DRUGS (4)
  1. XOLAIR [Suspect]
     Indication: ASTHMA
     Dosage: 300 MG, 1/MONTH
     Dates: start: 20100421
  2. INNOVAR [Concomitant]
     Indication: DRUG USE FOR UNKNOWN INDICATION
  3. EUPHYLLINE [Concomitant]
     Indication: DRUG USE FOR UNKNOWN INDICATION
  4. CORTANCYL [Concomitant]
     Indication: ASTHMA
     Dosage: 40 MG, UNK

REACTIONS (3)
  - ASTHMA [None]
  - BRONCHOSPASM [None]
  - C-REACTIVE PROTEIN INCREASED [None]
